FAERS Safety Report 10022478 (Version 1)
Quarter: 2014Q1

REPORT INFORMATION
  Report Type: Spontaneous
  Country: CO (occurrence: CO)
  Receive Date: 20140319
  Receipt Date: 20140319
  Transmission Date: 20141002
  Serious: Yes (Other)
  Sender: FDA-Public Use
  Company Number: CO-UCBSA-114783

PATIENT
  Age: 53 Year
  Sex: Male

DRUGS (7)
  1. KEPPRA [Suspect]
     Indication: EPILEPSY
     Dosage: 500MG TWO TABLETS
     Route: 048
     Dates: start: 201301
  2. AMOSARTAN [Concomitant]
  3. AMOSARTAN [Concomitant]
  4. TEGRETOL [Concomitant]
     Dosage: 200MG STRENGTH
     Dates: end: 201301
  5. COZAAR XQ [Concomitant]
  6. COZAAR XQ [Concomitant]
  7. CENTRUM SILVER [Concomitant]

REACTIONS (8)
  - Convulsion [Unknown]
  - Chest pain [Unknown]
  - Loss of consciousness [Unknown]
  - Choking [Unknown]
  - Grunting [Unknown]
  - Blunted affect [Unknown]
  - Dyskinesia [Unknown]
  - Drug ineffective [Unknown]
